FAERS Safety Report 4597429-8 (Version None)
Quarter: 2005Q1

REPORT INFORMATION
  Report Type: 
  Country: None (occurrence: None)
  Receive Date: 20050303
  Receipt Date: 20050209
  Transmission Date: 20050727
  Serious: Yes (Other)
  Sender: FDA-Public Use
  Company Number: PHEH2005US01860

PATIENT
  Age: 31 Year
  Sex: Female

DRUGS (1)
  1. TRILEPTAL [Suspect]
     Indication: COMPLEX PARTIAL SEIZURES
     Dosage: 300 MG, BID
     Route: 048
     Dates: start: 20030601

REACTIONS (1)
  - BLOOD PROLACTIN INCREASED [None]
